FAERS Safety Report 15845492 (Version 1)
Quarter: 2019Q1

REPORT INFORMATION
  Report Type: Spontaneous
  Country: US (occurrence: US)
  Receive Date: 20190119
  Receipt Date: 20190119
  Transmission Date: 20190417
  Serious: No
  Sender: FDA-Public Use
  Company Number: US-TEVA-2018-US-991207

PATIENT
  Age: 75 Year
  Sex: Female

DRUGS (4)
  1. LIDOCAINE TOPICAL 5%  PATCH [Suspect]
     Active Substance: LIDOCAINE
     Indication: MYALGIA
     Route: 062
  2. NORCO 10 MG/325 MG [Concomitant]
     Dosage: FORM STRENGTH: 10 MG/325 MG
     Route: 065
  3. GENERIC CELEBREX [Concomitant]
     Active Substance: CELECOXIB
     Route: 065
  4. OXYCONTIN [Concomitant]
     Active Substance: OXYCODONE HYDROCHLORIDE
     Route: 065

REACTIONS (1)
  - Application site discolouration [Unknown]
